FAERS Safety Report 13720526 (Version 3)
Quarter: 2017Q4

REPORT INFORMATION
  Report Type: Report from Study
  Country: GB (occurrence: GB)
  Receive Date: 20170706
  Receipt Date: 20171107
  Transmission Date: 20180320
  Serious: Yes (Hospitalization, Other)
  Sender: FDA-Public Use
  Company Number: GB-BRISTOL-MYERS SQUIBB COMPANY-BMS-2017-058775

PATIENT
  Age: 52 Year
  Sex: Male
  Weight: 109.5 kg

DRUGS (1)
  1. NIVOLUMAB [Suspect]
     Active Substance: NIVOLUMAB
     Indication: PRODUCT USED FOR UNKNOWN INDICATION
     Dosage: 336 MG, Q2WK
     Route: 042
     Dates: start: 20151118, end: 20151230

REACTIONS (2)
  - Postoperative respiratory distress [Not Recovered/Not Resolved]
  - Pancreatic leak [Recovered/Resolved]

NARRATIVE: CASE EVENT DATE: 20160218
